FAERS Safety Report 10083835 (Version 2)
Quarter: 2014Q2

REPORT INFORMATION
  Report Type: Spontaneous
  Country: US (occurrence: US)
  Receive Date: 20140417
  Receipt Date: 20140505
  Transmission Date: 20141212
  Serious: Yes (Hospitalization)
  Sender: FDA-Public Use
  Company Number: PHEH2014US007587

PATIENT
  Age: 47 Year
  Sex: Female

DRUGS (17)
  1. GILENYA [Suspect]
     Indication: RELAPSING-REMITTING MULTIPLE SCLEROSIS
     Dosage: 0.5 MG, QD
     Route: 048
     Dates: start: 20130304
  2. BACLOFEN [Concomitant]
     Indication: MUSCLE SPASTICITY
     Dosage: 10 MG, QID
  3. BUSPAR [Concomitant]
     Indication: ANXIETY
     Dosage: 1 MG, TID
     Dates: start: 201311
  4. LYRICA [Concomitant]
     Dosage: 100 MG, BID
     Route: 048
  5. ROBAXIN [Concomitant]
     Indication: MUSCLE SPASMS
     Dosage: 750 MG, TID
  6. PRILOSEC [Concomitant]
     Indication: GASTROOESOPHAGEAL REFLUX DISEASE
     Dosage: 20 MG, QD
  7. REQUIP [Concomitant]
     Dosage: 2 MG, QHS
  8. CYMBALTA [Concomitant]
     Dosage: 80 MG, QD
  9. COMPAZINE [Concomitant]
     Dosage: 10 MG, PRN
  10. IMITREX [Concomitant]
     Dosage: 100 MG, PRN
  11. VITAMIN D [Concomitant]
     Dosage: 5000 IU, QD
  12. MORPHINE [Concomitant]
     Dosage: 30 MG, TID
  13. AMPYRA [Concomitant]
     Dosage: 10 MG, BID
  14. KLONOPIN [Concomitant]
     Dosage: 0.5 MG, UNK
  15. DIAZEPAM [Concomitant]
     Dosage: 2 MG, QD
  16. DOCUSATE SODIUM [Concomitant]
     Dosage: 100 MG, BID
  17. MELATONIN PLUS [Concomitant]

REACTIONS (7)
  - Multiple sclerosis relapse [Recovered/Resolved with Sequelae]
  - Urinary incontinence [Recovering/Resolving]
  - Muscular weakness [Recovering/Resolving]
  - Asthenia [Recovering/Resolving]
  - Muscle spasticity [Recovering/Resolving]
  - Anxiety [Recovering/Resolving]
  - Fall [Unknown]
